FAERS Safety Report 15892457 (Version 1)
Quarter: 2019Q1

REPORT INFORMATION
  Report Type: Report from Study
  Country: US (occurrence: US)
  Receive Date: 20190130
  Receipt Date: 20190130
  Transmission Date: 20190417
  Serious: No
  Sender: FDA-Public Use
  Company Number: US-EXELIXIS-CABO-18014619

PATIENT
  Age: 56 Year
  Sex: Male

DRUGS (1)
  1. CABOMETYX [Suspect]
     Active Substance: CABOZANTINIB S-MALATE
     Indication: RENAL CANCER
     Dosage: 60 MG, QD
     Route: 048
     Dates: start: 20180328

REACTIONS (5)
  - Red cell distribution width increased [Unknown]
  - Oropharyngeal pain [Not Recovered/Not Resolved]
  - Blood potassium increased [Unknown]
  - Red blood cell count decreased [Unknown]
  - Anal ulcer [Unknown]

NARRATIVE: CASE EVENT DATE: 2018
